FAERS Safety Report 4802464-8 (Version None)
Quarter: 2005Q4

REPORT INFORMATION
  Report Type: 
  Country: None (occurrence: None)
  Receive Date: 20051011
  Receipt Date: 20050929
  Transmission Date: 20060501
  Serious: Yes (Other)
  Sender: FDA-Public Use
  Company Number: 2005135630

PATIENT
  Age: 54 Year
  Sex: Female
  Weight: 99.7913 kg

DRUGS (4)
  1. ACCUPRIL [Suspect]
     Indication: HYPERTENSION
     Dosage: 40 MG (40 MG, 1 IN 1 D), ORAL OVER A YEAR AGO
     Route: 048
  2. CLUCOPHAGE (METFORMIN HYDROCHLORIDE) [Concomitant]
  3. LOPRESSOR [Concomitant]
  4. INSULIN [Concomitant]

REACTIONS (1)
  - VASCULAR BYPASS GRAFT [None]
